FAERS Safety Report 23933222 (Version 1)
Quarter: 2024Q2

REPORT INFORMATION
  Report Type: Spontaneous
  Country: BE (occurrence: BE)
  Receive Date: 20240603
  Receipt Date: 20240603
  Transmission Date: 20240716
  Serious: Yes (Death)
  Sender: FDA-Public Use
  Company Number: BE-ELI_LILLY_AND_COMPANY-BE202405016731

PATIENT
  Age: 74 Year
  Sex: Male

DRUGS (1)
  1. RETEVMO [Suspect]
     Active Substance: SELPERCATINIB
     Indication: Lung adenocarcinoma stage III
     Dosage: 80 MG, UNKNOWN
     Route: 065

REACTIONS (1)
  - Death [Fatal]
